FAERS Safety Report 7004642-9 (Version None)
Quarter: 2010Q3

REPORT INFORMATION
  Report Type: 
  Country: None (occurrence: None)
  Receive Date: 20100921
  Receipt Date: 20100910
  Transmission Date: 20110219
  Serious: No
  Sender: FDA-Public Use
  Company Number: US-US-EMD SERONO, INC.-7017405

PATIENT
  Sex: Female

DRUGS (1)
  1. REBIF [Suspect]
     Indication: PRODUCT USED FOR UNKNOWN INDICATION
     Route: 058
     Dates: start: 20090831, end: 20100331

REACTIONS (5)
  - CARDIAC DISORDER [None]
  - DEPRESSED MOOD [None]
  - EMOTIONAL DISORDER [None]
  - HYPERTENSION [None]
  - MALAISE [None]
